FAERS Safety Report 18695474 (Version 2)
Quarter: 2021Q1

REPORT INFORMATION
  Report Type: Report from Study
  Country: BE (occurrence: BE)
  Receive Date: 20210104
  Receipt Date: 20210108
  Transmission Date: 20210419
  Serious: Yes (Hospitalization)
  Sender: FDA-Public Use
  Company Number: BE-PFIZER INC-2020506488

PATIENT
  Age: 69 Year
  Sex: Female

DRUGS (2)
  1. FULVESTRANT. [Concomitant]
     Active Substance: FULVESTRANT
     Indication: BREAST CANCER METASTATIC
     Dosage: 500 MG, ON DAYS 1 AND 15 OF CYCLE 1, THEN ON DAY 1 OF EVERY 28 DAY CYCLE
     Dates: start: 20190614, end: 20201127
  2. PALBOCICLIB [Suspect]
     Active Substance: PALBOCICLIB
     Indication: BREAST CANCER METASTATIC
     Dosage: 75 MG, CONTINUOUSLY FOR 3 WEEKS FOLLOWED BY 1 WEEK OFF; REPEATED AT EACH SUBSEQUENT CYCLE OF 28 DAYS
     Dates: start: 20190614, end: 20201215

REACTIONS (1)
  - Abdominal pain upper [Recovered/Resolved]

NARRATIVE: CASE EVENT DATE: 20201218
